FAERS Safety Report 5432282-1 (Version None)
Quarter: 2007Q3

REPORT INFORMATION
  Report Type: 
  Country: None (occurrence: None)
  Receive Date: 20070830
  Receipt Date: 20070822
  Transmission Date: 20080115
  Serious: Yes (Hospitalization)
  Sender: FDA-Public Use
  Company Number: JP-PFIZER INC-2007070555

PATIENT
  Age: 85 Year
  Sex: Female

DRUGS (11)
  1. CELECOX [Suspect]
     Dosage: DAILY DOSE:200MG
     Route: 048
     Dates: start: 20070701, end: 20070101
  2. LANSOPRAZOLE [Concomitant]
     Route: 048
  3. ATELEC [Concomitant]
     Route: 048
  4. ALFAROL [Concomitant]
     Route: 048
  5. FERROMIA [Concomitant]
     Route: 048
  6. MYONAL [Concomitant]
     Route: 048
  7. METHYCOBAL [Concomitant]
     Route: 048
  8. MICARDIS [Concomitant]
     Route: 048
  9. LENDORMIN [Concomitant]
     Route: 048
  10. LIPITOR [Concomitant]
     Route: 048
  11. MOBIC [Concomitant]
     Route: 048
     Dates: end: 20070701

REACTIONS (1)
  - ENTEROCOLITIS [None]
